FAERS Safety Report 5792678-5 (Version None)
Quarter: 2008Q2

REPORT INFORMATION
  Report Type: 
  Country: None (occurrence: None)
  Receive Date: 20080624
  Receipt Date: 20080613
  Transmission Date: 20081010
  Serious: Yes (Other)
  Sender: FDA-Public Use
  Company Number: SPV1-2008-01210

PATIENT
  Age: 60 Year
  Sex: Female
  Weight: 59 kg

DRUGS (6)
  1. LIALDA [Suspect]
     Indication: COLITIS ULCERATIVE
     Dosage: 2.4 G, 2X/DAY:BID, ORAL
     Route: 048
     Dates: start: 20080327, end: 20080514
  2. EVISTA [Concomitant]
  3. LIPITOR [Concomitant]
  4. VERAPAMIL [Concomitant]
  5. GLUCOSAMINE (GLUCOSAMINE) [Concomitant]
  6. LEVBID (HYOSCYAMINE SULFATE) [Concomitant]

REACTIONS (1)
  - HEPATITIS ACUTE [None]
